FAERS Safety Report 6874124-3 (Version None)
Quarter: 2010Q3

REPORT INFORMATION
  Report Type: 
  Country: None (occurrence: None)
  Receive Date: 20100723
  Receipt Date: 20090505
  Transmission Date: 20110219
  Serious: No
  Sender: FDA-Public Use
  Company Number: US-PFIZER INC-2009199339

PATIENT
  Sex: Female
  Weight: 68.03 kg

DRUGS (3)
  1. CHANTIX [Suspect]
     Indication: SMOKING CESSATION THERAPY
     Dosage: 1 MG, 2X/DAY
     Dates: start: 20090323
  2. NAVANE [Concomitant]
     Indication: DOPAMINE DYSREGULATION SYNDROME
     Dosage: UNK
  3. FOSAMAX [Concomitant]
     Indication: DOPAMINE DYSREGULATION SYNDROME
     Dosage: UNK

REACTIONS (4)
  - BALANCE DISORDER [None]
  - DYSGEUSIA [None]
  - DYSPNOEA [None]
  - MYALGIA [None]
